FAERS Safety Report 7543009-1 (Version None)
Quarter: 2011Q2

REPORT INFORMATION
  Report Type: 
  Country: None (occurrence: None)
  Receive Date: 20110613
  Receipt Date: 20110603
  Transmission Date: 20111010
  Serious: Yes (Hospitalization)
  Sender: FDA-Public Use
  Company Number: US-ABBOTT-11P-163-0730233-00

PATIENT
  Sex: Female

DRUGS (6)
  1. AMBIEN [Concomitant]
     Indication: INSOMNIA
     Dates: start: 20090126
  2. FLAGYL [Concomitant]
     Indication: CROHN'S DISEASE
     Dates: start: 20090126
  3. HUMIRA [Suspect]
     Dosage: WEEK 2
     Route: 058
  4. HUMIRA [Suspect]
     Route: 058
     Dates: end: 20090427
  5. HUMIRA [Suspect]
     Indication: CROHN'S DISEASE
     Dosage: BASELINE
     Route: 058
     Dates: start: 20081104, end: 20081104
  6. CORTICOSTEROIDS [Concomitant]
     Indication: CROHN'S DISEASE
     Dates: start: 19990101

REACTIONS (2)
  - HIDRADENITIS [None]
  - ANAL ABSCESS [None]
